FAERS Safety Report 9786165 (Version 1)
Quarter: 2013Q4

REPORT INFORMATION
  Report Type: Spontaneous
  Country: BR (occurrence: BR)
  Receive Date: 20131227
  Receipt Date: 20131227
  Transmission Date: 20140711
  Serious: Yes (Disabling)
  Sender: FDA-Public Use
  Company Number: BR-009507513-1312BRA010453

PATIENT
  Sex: Male

DRUGS (3)
  1. VICTRELIS [Suspect]
     Indication: HEPATITIS C
     Dosage: UNK, UNKNOWN
     Route: 048
     Dates: start: 20131126
  2. INTERFERON (UNSPECIFIED) [Concomitant]
     Indication: HEPATITIS C
     Dosage: UNK, UNKNOWN
     Route: 065
     Dates: start: 20131126
  3. RIBAVIRIN (NON-MERCK) [Concomitant]
     Indication: HEPATITIS C
     Dosage: UNK, UNKNOWN
     Route: 065
     Dates: start: 20131126

REACTIONS (4)
  - Nervousness [Not Recovered/Not Resolved]
  - Influenza like illness [Not Recovered/Not Resolved]
  - Paraesthesia oral [Not Recovered/Not Resolved]
  - Decreased appetite [Not Recovered/Not Resolved]
